FAERS Safety Report 20204513 (Version 2)
Quarter: 2022Q1

REPORT INFORMATION
  Report Type: Spontaneous
  Country: JP (occurrence: JP)
  Receive Date: 20211220
  Receipt Date: 20220106
  Transmission Date: 20220423
  Serious: Yes (Other)
  Sender: FDA-Public Use
  Company Number: JP-MSD-2112JPN001318J

PATIENT
  Age: 71 Year
  Sex: Female

DRUGS (3)
  1. KEYTRUDA [Suspect]
     Active Substance: PEMBROLIZUMAB
     Indication: Mucoepidermoid carcinoma
     Dosage: UNK
     Route: 041
  2. CARBOPLATIN [Concomitant]
     Active Substance: CARBOPLATIN
     Indication: Mucoepidermoid carcinoma
     Dosage: UNK
     Route: 051
  3. PACLITAXEL [Concomitant]
     Active Substance: PACLITAXEL
     Indication: Mucoepidermoid carcinoma
     Dosage: UNK
     Route: 051

REACTIONS (2)
  - Neutropenia [Unknown]
  - Erythema multiforme [Unknown]
